FAERS Safety Report 10029882 (Version 1)
Quarter: 2014Q1

REPORT INFORMATION
  Report Type: Spontaneous
  Country: US (occurrence: None)
  Receive Date: 20140306
  Receipt Date: 20140306
  Transmission Date: 20141002
  Serious: Yes (Hospitalization, Other)
  Sender: FDA-Public Use
  Company Number: 163-21880-13011255

PATIENT
  Age: 71 Year
  Sex: Female
  Weight: 74.84 kg

DRUGS (10)
  1. REVLIMID(LENALIDOMIDE)(25 MILLIGRAM, CAPSULES) [Suspect]
     Indication: PLASMA CELL MYELOMA
     Dosage: 25 MG, 21 IN 28 D, PO
     Route: 048
     Dates: start: 20120815
  2. ESOMEPRAZOLE(ESOMEPRAZOLE) [Concomitant]
  3. VENLAFAXINE(VENLAFAXINE) [Concomitant]
  4. OXYBUTYNIN(OXYBUTYNIN) [Concomitant]
  5. ESOMEPRAZOLE(ESOMEPRAZOLE) [Concomitant]
  6. VENLAFAXINE(VENLAFAXINE) [Concomitant]
  7. OXYBUTYNIN(OXYBUTYNIN) [Concomitant]
  8. ASPIRIN(ACETYLSALICYLIC ACID) [Concomitant]
  9. SIMVASTATIN(SIMVASTATIN) [Concomitant]
  10. OXYCODONE(OXYCODONE) [Concomitant]

REACTIONS (4)
  - Cholecystitis [None]
  - White blood cell count decreased [None]
  - Neutrophil count decreased [None]
  - Thrombosis [None]
